FAERS Safety Report 12706122 (Version 3)
Quarter: 2020Q2

REPORT INFORMATION
  Report Type: Spontaneous
  Country: US (occurrence: US)
  Receive Date: 20160901
  Receipt Date: 20200423
  Transmission Date: 20200713
  Serious: No
  Sender: FDA-Public Use
  Company Number: US-JAZZ-2016-US-008008

PATIENT
  Age: 26 Year
  Sex: Female

DRUGS (21)
  1. XYREM [Suspect]
     Active Substance: SODIUM OXYBATE
     Indication: CATAPLEXY
     Dosage: DOSE ADJUSTMENTS
     Route: 048
  2. XYREM [Suspect]
     Active Substance: SODIUM OXYBATE
     Dosage: DOSE ADJUSTMENTS
     Route: 048
  3. LAMOTRIGINE. [Concomitant]
     Active Substance: LAMOTRIGINE
  4. CYANOCOBALAMIN. [Concomitant]
     Active Substance: CYANOCOBALAMIN
  5. CYMBALTA [Concomitant]
     Active Substance: DULOXETINE HYDROCHLORIDE
  6. TRAZODONE HYDROCHLORIDE. [Concomitant]
     Active Substance: TRAZODONE HYDROCHLORIDE
  7. VYVANSE [Concomitant]
     Active Substance: LISDEXAMFETAMINE DIMESYLATE
  8. XYREM [Suspect]
     Active Substance: SODIUM OXYBATE
     Indication: NARCOLEPSY
     Dosage: 2.25 G, BID
     Route: 048
     Dates: start: 201205, end: 201206
  9. YAZ [Concomitant]
     Active Substance: DROSPIRENONE\ETHINYL ESTRADIOL
  10. KEFLEX [Suspect]
     Active Substance: CEPHALEXIN
     Indication: PRODUCT USED FOR UNKNOWN INDICATION
  11. NUVIGIL [Concomitant]
     Active Substance: ARMODAFINIL
  12. TOPAMAX [Concomitant]
     Active Substance: TOPIRAMATE
  13. XYREM [Suspect]
     Active Substance: SODIUM OXYBATE
     Dosage: 3 G, BID
     Route: 048
     Dates: start: 201512, end: 201512
  14. XYREM [Suspect]
     Active Substance: SODIUM OXYBATE
     Dosage: 3.75 G, BID
     Route: 048
     Dates: start: 201512
  15. XYREM [Suspect]
     Active Substance: SODIUM OXYBATE
     Dosage: 2.25 G, BID
     Route: 048
     Dates: start: 201502, end: 201502
  16. XYREM [Suspect]
     Active Substance: SODIUM OXYBATE
     Dosage: 2.25 G, BID
     Route: 048
     Dates: start: 201511, end: 201511
  17. LYRICA [Concomitant]
     Active Substance: PREGABALIN
  18. XYREM [Suspect]
     Active Substance: SODIUM OXYBATE
     Dosage: 4.5 G, FIRST DOSE
     Route: 048
     Dates: start: 201309, end: 2013
  19. XYREM [Suspect]
     Active Substance: SODIUM OXYBATE
     Dosage: 3.75 G, SECOND DOSE
     Route: 048
     Dates: start: 201309, end: 2013
  20. XYREM [Suspect]
     Active Substance: SODIUM OXYBATE
     Dosage: 4.5 G, BID
     Route: 048
     Dates: start: 201502, end: 201502
  21. RITALIN [Concomitant]
     Active Substance: METHYLPHENIDATE HYDROCHLORIDE

REACTIONS (5)
  - Extra dose administered [Unknown]
  - Abdominal discomfort [Unknown]
  - Sinusitis [Unknown]
  - Ear infection [Unknown]
  - Vomiting [Unknown]

NARRATIVE: CASE EVENT DATE: 201603
